FAERS Safety Report 20629025 (Version 1)
Quarter: 2022Q1

REPORT INFORMATION
  Report Type: Other
  Country: MX (occurrence: None)
  Receive Date: 20220323
  Receipt Date: 20220323
  Transmission Date: 20220423
  Serious: Yes (Hospitalization)
  Sender: FDA-Public Use
  Company Number: MX-ROCHE-3056894

PATIENT
  Sex: Female

DRUGS (2)
  1. TOCILIZUMAB [Suspect]
     Active Substance: TOCILIZUMAB
     Indication: Rheumatoid arthritis
     Route: 058
  2. TOCILIZUMAB [Suspect]
     Active Substance: TOCILIZUMAB
     Route: 058
     Dates: start: 20210321

REACTIONS (4)
  - Off label use [Unknown]
  - Intentional product misuse [Unknown]
  - Malaise [Not Recovered/Not Resolved]
  - Adverse drug reaction [Not Recovered/Not Resolved]
